FAERS Safety Report 13853856 (Version 4)
Quarter: 2017Q4

REPORT INFORMATION
  Report Type: Spontaneous
  Country: GB (occurrence: GB)
  Receive Date: 20170810
  Receipt Date: 20171208
  Transmission Date: 20180320
  Serious: Yes (Death, Hospitalization)
  Sender: FDA-Public Use
  Company Number: GB-JNJFOC-20170809023

PATIENT
  Sex: Male

DRUGS (6)
  1. DILTIAZEM. [Concomitant]
     Active Substance: DILTIAZEM
     Route: 048
  2. BENDROFLUMETHIAZIDE [Concomitant]
     Active Substance: BENDROFLUMETHIAZIDE
     Route: 048
  3. EPLERENONE. [Concomitant]
     Active Substance: EPLERENONE
     Route: 048
  4. ATORVASTATIN [Concomitant]
     Active Substance: ATORVASTATIN
     Route: 048
  5. STELARA [Suspect]
     Active Substance: USTEKINUMAB
     Indication: PSORIASIS
     Route: 058
     Dates: start: 201311
  6. DABIGATRAN [Concomitant]
     Active Substance: DABIGATRAN
     Route: 048

REACTIONS (2)
  - Hypertensive cardiomyopathy [Fatal]
  - Hepatic cirrhosis [Fatal]
